FAERS Safety Report 18756239 (Version 1)
Quarter: 2021Q1

REPORT INFORMATION
  Report Type: Spontaneous
  Country: US (occurrence: US)
  Receive Date: 20210117
  Receipt Date: 20210117
  Transmission Date: 20210419
  Serious: Yes (Hospitalization, Disabling)
  Sender: FDA-Public Use
  Company Number: None

PATIENT
  Age: 71 Year
  Sex: Female
  Weight: 83.25 kg

DRUGS (9)
  1. AMLODAPINE/OLMESARTAN [Concomitant]
     Active Substance: AMLODIPINE BESYLATE\OLMESARTAN MEDOXOMIL
  2. LISINOPRIL. [Concomitant]
     Active Substance: LISINOPRIL
  3. IVIG [Concomitant]
     Active Substance: HUMAN IMMUNOGLOBULIN G
  4. VITAMIN D [Concomitant]
     Active Substance: VITAMIN D NOS
  5. CARVIDOLIL [Concomitant]
  6. ASPERIN [ACETYLSALICYLIC ACID] [Concomitant]
     Active Substance: ASPIRIN
  7. ATORVASTATIN [Suspect]
     Active Substance: ATORVASTATIN
     Indication: BLOOD CHOLESTEROL
     Route: 048
     Dates: start: 20170901, end: 20200613
  8. PREDNISONE. [Concomitant]
     Active Substance: PREDNISONE
  9. SULFOMETHOXAZOLE TRIMETROPRIM [Concomitant]
     Active Substance: SULFAMETHOXAZOLE\TRIMETHOPRIM

REACTIONS (1)
  - Necrotising myositis [None]

NARRATIVE: CASE EVENT DATE: 20201027
